FAERS Safety Report 21838326 (Version 1)
Quarter: 2023Q1

REPORT INFORMATION
  Report Type: Spontaneous
  Country: US (occurrence: US)
  Receive Date: 20230109
  Receipt Date: 20230109
  Transmission Date: 20230417
  Serious: Yes (Other)
  Sender: FDA-Public Use
  Company Number: US-002147023-NVSC2023US002488

PATIENT

DRUGS (2)
  1. PAZOPANIB [Suspect]
     Active Substance: PAZOPANIB
     Indication: Haemorrhage
     Dosage: 50 MG, QD (STARTED DOSE)
     Route: 048
  2. PAZOPANIB [Suspect]
     Active Substance: PAZOPANIB
     Indication: Anaemia
     Dosage: 400 MG, QD (MAXIMAL DOSE, DOSE ESCALATION BY 50-100 MG INCREMENTS)
     Route: 048

REACTIONS (3)
  - Leukopenia [Recovered/Resolved]
  - Concomitant disease aggravated [Recovered/Resolved]
  - Product use in unapproved indication [Unknown]
